FAERS Safety Report 19428489 (Version 2)
Quarter: 2021Q3

REPORT INFORMATION
  Report Type: Report from Study
  Country: None (occurrence: US)
  Receive Date: 20210616
  Receipt Date: 20210803
  Transmission Date: 20211014
  Serious: Yes (Other)
  Sender: FDA-Public Use
  Company Number: US-ABBVIE-21K-163-3945032-00

PATIENT
  Sex: Male
  Weight: 131.66 kg

DRUGS (1)
  1. HUMIRA [Suspect]
     Active Substance: ADALIMUMAB
     Indication: PSORIATIC ARTHROPATHY
     Dosage: CITRATE FREE
     Route: 058
     Dates: end: 20210510

REACTIONS (3)
  - Intervertebral disc calcification [Recovered/Resolved]
  - Scoliosis [Not Recovered/Not Resolved]
  - Intervertebral disc calcification [Unknown]

NARRATIVE: CASE EVENT DATE: 2021
